FAERS Safety Report 14379167 (Version 1)
Quarter: 2018Q1

REPORT INFORMATION
  Report Type: Spontaneous
  Country: JP (occurrence: JP)
  Receive Date: 20180112
  Receipt Date: 20180112
  Transmission Date: 20180509
  Serious: Yes (Death, Hospitalization)
  Sender: FDA-Public Use
  Company Number: JP-CIPLA LTD.-2018JP00574

PATIENT

DRUGS (11)
  1. LINAGLIPTIN [Suspect]
     Active Substance: LINAGLIPTIN
     Indication: DIABETES MELLITUS
     Dosage: 5 MG, PER DAY
     Route: 065
  2. VOGLIBOSE [Suspect]
     Active Substance: VOGLIBOSE
     Indication: DIABETES MELLITUS
     Dosage: 0.6 MG, PER DAY
     Route: 065
  3. TELMISARTAN. [Suspect]
     Active Substance: TELMISARTAN
     Dosage: 20 MG, PER DAY
     Route: 065
  4. TACROLIMUS. [Concomitant]
     Active Substance: TACROLIMUS
     Dosage: 3 MG, PER DAY
     Route: 065
  5. WARFARIN [Suspect]
     Active Substance: WARFARIN
     Indication: PORTAL VEIN THROMBOSIS
     Dosage: UNK
     Route: 065
  6. CLOPIDOGREL [Suspect]
     Active Substance: CLOPIDOGREL BISULFATE
     Dosage: 75 MG, PER DAY
     Route: 065
  7. METHYLPREDNISOLONE. [Concomitant]
     Active Substance: METHYLPREDNISOLONE
     Dosage: 4 MG, PER DAY
     Route: 065
  8. ASPIRIN. [Suspect]
     Active Substance: ASPIRIN
     Dosage: 200 MG, UNK
     Route: 065
  9. BISOPROLOL [Suspect]
     Active Substance: BISOPROLOL
     Dosage: 2.5 MG, PER DAY
     Route: 065
  10. PRASUGREL. [Suspect]
     Active Substance: PRASUGREL
     Dosage: 3.75 MG, PER DAY
     Route: 065
  11. MYCOPHENOLATE MOFETIL. [Concomitant]
     Active Substance: MYCOPHENOLATE MOFETIL
     Dosage: 500 MG, PER DAY
     Route: 065

REACTIONS (3)
  - Vascular stent thrombosis [Unknown]
  - Death [Fatal]
  - Acute myocardial infarction [Unknown]
